FAERS Safety Report 9908099 (Version 1)
Quarter: 2013Q2

REPORT INFORMATION
  Report Type: Spontaneous
  Country: US (occurrence: None)
  Receive Date: 20130305
  Receipt Date: 20130305
  Transmission Date: 20140414
  Serious: Yes (Hospitalization)
  Sender: FDA-Public Use
  Company Number: 163-21880-12041840

PATIENT
  Age: 79 Year
  Sex: Female
  Weight: 65.32 kg

DRUGS (13)
  1. REVLIMID (LENALIDOMIDE) (5 MILLIGRAM, CAPSULES) [Suspect]
     Indication: 5Q MINUS SYNDROME
     Route: 048
     Dates: start: 200811
  2. STEROIDS (OTHER THERAPEUTIC PRODUCTS) (UNKNOWN) [Concomitant]
  3. NORCO (VICODIN) (TABLET) [Concomitant]
  4. CELEXA (CITALOPRAM  HYDROBROMIDE) (TABLETS) [Concomitant]
  5. BUPROPION XL (BUPROPION HYDROCHLORIDE) (150 MILLIGRAM, TABLETS) [Concomitant]
  6. XANAX (ALPRAZOLAM) (UNKNOWN) [Concomitant]
  7. PROMETHAZINE (PROMETHAZINE) (TABLETS) [Concomitant]
  8. MUCINEX (GUAIFENESIN) (TABLETS) [Concomitant]
  9. CHLORPHENIRAMINE HYDROCODONE (CHLORPHENIRAMINE HYDROCHLORIDE) (SUSPENSION) [Concomitant]
  10. POTASSIUM CHLORIDE (POTASSIUM CHLORIDE) (CAPSULES) [Concomitant]
  11. MELOXICAM (MELOXICAM) (TABLETS) [Concomitant]
  12. DOCUSATE CALCIUM (DOCUSATE CALCIUM) (UNKNOWN) [Concomitant]
  13. LASIX (FUROSEMIDE) (TABLETS) [Concomitant]

REACTIONS (8)
  - Febrile neutropenia [None]
  - Neutrophil count decreased [None]
  - Gastrointestinal viral infection [None]
  - Diarrhoea [None]
  - Bradycardia [None]
  - Anaemia [None]
  - Asthenia [None]
  - Fatigue [None]
